FAERS Safety Report 19810623 (Version 1)
Quarter: 2021Q3

REPORT INFORMATION
  Report Type: Spontaneous
  Country: US (occurrence: US)
  Receive Date: 20210909
  Receipt Date: 20210909
  Transmission Date: 20211014
  Serious: Yes (Hospitalization, Other)
  Sender: FDA-Public Use
  Company Number: US-PFIZER INC-202101140901

PATIENT
  Age: 64 Year
  Sex: Male
  Weight: 119.7 kg

DRUGS (1)
  1. NEURONTIN [Suspect]
     Active Substance: GABAPENTIN
     Indication: ATRIAL FIBRILLATION
     Dosage: 3600 MG, DAILY
     Route: 048
     Dates: start: 20201216

REACTIONS (5)
  - Type 2 diabetes mellitus [Unknown]
  - Sleep apnoea syndrome [Unknown]
  - Mitral valve incompetence [Unknown]
  - Off label use [Unknown]
  - Diabetic neuropathy [Unknown]

NARRATIVE: CASE EVENT DATE: 20201216
